FAERS Safety Report 5924641-5 (Version None)
Quarter: 2008Q3

REPORT INFORMATION
  Report Type: 
  Country: None (occurrence: None)
  Receive Date: 20080909
  Receipt Date: 20080617
  Transmission Date: 20090109
  Serious: Yes (Death, Hospitalization)
  Sender: FDA-Public Use
  Company Number: 163-20785-08021721

PATIENT
  Age: 70 Year
  Sex: Male

DRUGS (16)
  1. THALOMID [Suspect]
     Indication: MULTIPLE MYELOMA
     Dosage: 50 MG, OD, ORAL
     Route: 048
     Dates: start: 20080220, end: 20080201
  2. ARANESP [Concomitant]
  3. ZETIA [Concomitant]
  4. CARDURA [Concomitant]
  5. LASIX [Concomitant]
  6. ASPIRIN [Concomitant]
  7. DECADRON [Concomitant]
  8. MICARDIS [Concomitant]
  9. DURAGESIC (FENTANYL) (POULTICE OR PATCH) [Concomitant]
  10. DILAUDID [Concomitant]
  11. PEROCOCET (OXYCOCET) [Concomitant]
  12. WELLBUTRIN [Concomitant]
  13. COUMADIN [Concomitant]
  14. PROTONIX [Concomitant]
  15. FLORINEF [Concomitant]
  16. COREG CR (CARVEDILOL) [Concomitant]

REACTIONS (3)
  - ANAEMIA [None]
  - DEHYDRATION [None]
  - MULTIPLE MYELOMA [None]
